FAERS Safety Report 9324908 (Version 2)
Quarter: 2013Q2

REPORT INFORMATION
  Report Type: Spontaneous
  Country: FR (occurrence: FR)
  Receive Date: 20130603
  Receipt Date: 20130606
  Transmission Date: 20140414
  Serious: Yes (Other)
  Sender: FDA-Public Use
  Company Number: FR-GILEAD-2013-0076247

PATIENT
  Sex: Female

DRUGS (3)
  1. TRUVADA [Suspect]
     Indication: PROPHYLAXIS AGAINST HIV INFECTION
  2. LOPINAVIR W/RITONAVIR [Concomitant]
     Indication: PROPHYLAXIS AGAINST HIV INFECTION
  3. SEROQUEL XR [Concomitant]
     Indication: BIPOLAR DISORDER
     Dosage: 150 MG, QD

REACTIONS (1)
  - Coma [Unknown]
